FAERS Safety Report 6994245-4 (Version None)
Quarter: 2010Q3

REPORT INFORMATION
  Report Type: 
  Country: None (occurrence: None)
  Receive Date: 20100917
  Receipt Date: 20100517
  Transmission Date: 20110219
  Serious: Yes (Hospitalization)
  Sender: FDA-Public Use
  Company Number: US-ASTRAZENECA-2009SE17644

PATIENT
  Sex: Male

DRUGS (8)
  1. SEROQUEL [Suspect]
     Route: 048
     Dates: start: 20030101, end: 20030503
  2. ATENOLOL [Concomitant]
  3. SYNTHROID [Concomitant]
  4. HYDROCHLOROTHIAZIDE [Concomitant]
     Dates: end: 20030503
  5. BUSPAR [Concomitant]
  6. ELAVIL [Concomitant]
  7. CLONAZEPAM [Concomitant]
  8. POTASSIUM CHLORIDE [Concomitant]
     Dates: end: 20030503

REACTIONS (3)
  - DIABETES MELLITUS [None]
  - DIABETIC COMA [None]
  - DIABETIC KETOACIDOSIS [None]
